FAERS Safety Report 7906867-4 (Version None)
Quarter: 2011Q4

REPORT INFORMATION
  Report Type: 
  Country: None (occurrence: None)
  Receive Date: 20111110
  Receipt Date: 20111107
  Transmission Date: 20120403
  Serious: Yes (Death)
  Sender: FDA-Public Use
  Company Number: AT-GILEAD-2011-0039683

PATIENT
  Age: 86 Year
  Sex: Male

DRUGS (15)
  1. METOPROLOL TARTRATE [Concomitant]
     Route: 048
  2. ENALAPRIL/HCT [Concomitant]
     Route: 048
  3. CITALOPRAM HYDROBROMIDE [Concomitant]
  4. ENALAPRIL/HCT [Concomitant]
     Route: 048
  5. ALPRAZOLAM [Concomitant]
     Route: 003
  6. ASPIRIN [Concomitant]
     Route: 048
  7. NEXIUM [Concomitant]
     Route: 048
  8. DIGIMERCK [Concomitant]
     Route: 048
  9. PLAVIX [Concomitant]
     Route: 048
  10. ENALAPRIL MALEATE [Concomitant]
     Route: 048
  11. RANOLAZINE [Suspect]
     Dosage: 500 MG, BID
     Route: 048
     Dates: start: 20110415, end: 20110507
  12. ATORVASTATIN CALCIUM [Suspect]
     Route: 048
     Dates: end: 20110507
  13. NOVOLOG MIX 70/30 [Concomitant]
     Route: 058
  14. MOLSIDOLAT [Concomitant]
     Route: 048
  15. DANCOR [Concomitant]
     Route: 048

REACTIONS (2)
  - DRUG INTERACTION [None]
  - RHABDOMYOLYSIS [None]
